FAERS Safety Report 7198236-2 (Version None)
Quarter: 2010Q4

REPORT INFORMATION
  Report Type: 
  Country: None (occurrence: None)
  Receive Date: 20101223
  Receipt Date: 20101223
  Transmission Date: 20110411
  Serious: No
  Sender: FDA-Public Use
  Company Number: None

PATIENT
  Age: 67 Year
  Sex: Female
  Weight: 88.4514 kg

DRUGS (1)
  1. METOPROLOL SUCCINATE [Suspect]
     Indication: AORTIC ANEURYSM
     Dosage: 1 TABLET BY MOUTH DAILY PO
     Route: 048
     Dates: start: 20101018, end: 20101028

REACTIONS (5)
  - ATRIAL FIBRILLATION [None]
  - EXTRASYSTOLES [None]
  - HEART RATE INCREASED [None]
  - HEART RATE IRREGULAR [None]
  - PRODUCT SUBSTITUTION ISSUE [None]
